FAERS Safety Report 12358169 (Version 1)
Quarter: 2016Q2

REPORT INFORMATION
  Report Type: Spontaneous
  Country: US (occurrence: US)
  Receive Date: 20160512
  Receipt Date: 20160512
  Transmission Date: 20160815
  Serious: Yes (Hospitalization)
  Sender: FDA-Public Use
  Company Number: US-BAUSCH-BL-2016-010888

PATIENT
  Sex: Male

DRUGS (3)
  1. XIFAXAN [Suspect]
     Active Substance: RIFAXIMIN
     Route: 048
     Dates: start: 20160408, end: 20160420
  2. LACTULOSE. [Concomitant]
     Active Substance: LACTULOSE
     Indication: LIVER DISORDER
     Route: 048
     Dates: start: 201510
  3. XIFAXAN [Suspect]
     Active Substance: RIFAXIMIN
     Indication: LIVER DISORDER
     Route: 048
     Dates: start: 20150922, end: 201510

REACTIONS (4)
  - Asthenia [Unknown]
  - Pneumonia [Unknown]
  - Fall [Unknown]
  - Decreased appetite [Unknown]
